FAERS Safety Report 18529244 (Version 3)
Quarter: 2021Q1

REPORT INFORMATION
  Report Type: Spontaneous
  Country: CA (occurrence: CA)
  Receive Date: 20201120
  Receipt Date: 20210118
  Transmission Date: 20210419
  Serious: Yes (Other)
  Sender: FDA-Public Use
  Company Number: CA-TEVA-2020-CA-1849843

PATIENT
  Age: 62 Year
  Sex: Male

DRUGS (1)
  1. METFORMIN [Suspect]
     Active Substance: METFORMIN HYDROCHLORIDE
     Route: 048

REACTIONS (4)
  - Product quality issue [Unknown]
  - Gastrointestinal oedema [Unknown]
  - Gastrointestinal inflammation [Unknown]
  - Gastrointestinal disorder [Unknown]
